FAERS Safety Report 4383618-4 (Version None)
Quarter: 2004Q2

REPORT INFORMATION
  Report Type: 
  Country: None (occurrence: None)
  Receive Date: 20040618
  Receipt Date: 20040604
  Transmission Date: 20050107
  Serious: Yes (Hospitalization)
  Sender: FDA-Public Use
  Company Number: 2004218153JP

PATIENT
  Age: 63 Year
  Sex: Male

DRUGS (11)
  1. CAMPTOSAR [Suspect]
     Indication: NON-SMALL CELL LUNG CANCER STAGE IV
     Dosage: 35 MG/BODY, CYCLIC, IV DRIP
     Route: 041
     Dates: start: 20021010, end: 20021114
  2. NEOCEL (DOCETAXEL) SOLUTION, STERILE [Suspect]
     Indication: NON-SMALL CELL LUNG CANCER STAGE IV
     Dosage: 50 MG/M2, CYCLIC, IV
     Route: 042
     Dates: start: 20021011, end: 20021101
  3. GRAN [Concomitant]
  4. LOXONIN (LOXOPROFEN SODIUM) [Concomitant]
  5. APLACE (TROXIPIDE) [Concomitant]
  6. ZOLPIDEM TARTRATE [Concomitant]
  7. HANGE SHESHIN [Concomitant]
  8. CARBENIN (PANIPENEM , BETAMIPRON) [Concomitant]
  9. MINOMYCIN [Concomitant]
  10. SOLU-MEDROL [Concomitant]
  11. PRELONE [Concomitant]

REACTIONS (7)
  - DIARRHOEA [None]
  - DISEASE PROGRESSION [None]
  - HAEMOGLOBIN DECREASED [None]
  - LEUKOPENIA [None]
  - NEUTROPENIA [None]
  - OXYGEN SATURATION DECREASED [None]
  - PNEUMONITIS [None]
